FAERS Safety Report 16831196 (Version 1)
Quarter: 2019Q3

REPORT INFORMATION
  Report Type: Spontaneous
  Country: DE (occurrence: DE)
  Receive Date: 20190920
  Receipt Date: 20190920
  Transmission Date: 20191005
  Serious: Yes (Hospitalization)
  Sender: FDA-Public Use
  Company Number: DE-TEVA-2019-DE-1048398

PATIENT
  Age: 49 Year
  Sex: Female
  Weight: 71 kg

DRUGS (4)
  1. CIPROFLOXACIN-RATIOPHARM [Suspect]
     Active Substance: CIPROFLOXACIN
     Indication: URINARY TRACT INFECTION
     Dosage: STANDARD
     Route: 048
     Dates: start: 20151215, end: 20151222
  2. MTX [Concomitant]
     Active Substance: METHOTREXATE SODIUM
     Indication: RHEUMATOID ARTHRITIS
     Route: 065
  3. CIPROFLOXACIN-RATIOPHARM [Suspect]
     Active Substance: CIPROFLOXACIN
     Dosage: TAKING AT THE END OF 2017
     Route: 048
     Dates: start: 201712
  4. KORTISON [Concomitant]
     Active Substance: CORTISONE ACETATE
     Indication: RHEUMATOID ARTHRITIS
     Route: 065

REACTIONS (3)
  - Plantar fasciitis [Not Recovered/Not Resolved]
  - Plantar fasciitis [Not Recovered/Not Resolved]
  - Mobility decreased [Unknown]

NARRATIVE: CASE EVENT DATE: 201603
